FAERS Safety Report 17893571 (Version 1)
Quarter: 2020Q3

REPORT INFORMATION
  Report Type: Spontaneous
  Country: FR (occurrence: FR)
  Receive Date: 20200615
  Receipt Date: 20200615
  Transmission Date: 20201105
  Serious: Yes (Other)
  Sender: FDA-Public Use
  Company Number: FR-CADILA HEALTHCARE LIMITED-FR-ZYDUS-024040

PATIENT

DRUGS (44)
  1. GABAPENTINE [Suspect]
     Active Substance: GABAPENTIN
     Indication: DIABETIC NEUROPATHY
     Dosage: 400 MILLIGRAM,400 MG, QD,(INTERVAL :1 DAYS)
     Route: 064
     Dates: start: 20160930
  2. METFORMIN [Suspect]
     Active Substance: METFORMIN HYDROCHLORIDE
     Indication: TYPE 2 DIABETES MELLITUS
     Dosage: 850 MILLIGRAM,850MG DAILY,(INTERVAL :1 DAYS)
     Route: 064
  3. RAMIPRIL. [Suspect]
     Active Substance: RAMIPRIL
     Indication: HYPERTENSION
     Dosage: 2.5 MILLIGRAM,2.5 MG, QD,(INTERVAL :1 DAYS)
     Route: 064
     Dates: start: 20160930, end: 20170224
  4. FOLIC ACID. [Suspect]
     Active Substance: FOLIC ACID
     Indication: NORMOCHROMIC NORMOCYTIC ANAEMIA
     Dosage: 5 MILLIGRAM,5 MG, QD,(INTERVAL :1 DAYS)
     Route: 064
     Dates: start: 20170224, end: 20170313
  5. CALCIUM FOLINATE [Suspect]
     Active Substance: LEUCOVORIN CALCIUM
     Indication: NORMOCHROMIC NORMOCYTIC ANAEMIA
     Dosage: 5 MILLIGRAM,(INTERVAL :1 DAYS)
     Route: 064
     Dates: start: 20170224, end: 20170313
  6. FORLAX [Suspect]
     Active Substance: POLYETHYLENE GLYCOL 4000
     Indication: CONSTIPATION
     Dosage: 1 DOSAGE FORM,1 DF, QD
     Route: 064
     Dates: start: 20160930, end: 20170224
  7. METFORMIN [Suspect]
     Active Substance: METFORMIN HYDROCHLORIDE
     Indication: TYPE 2 DIABETES MELLITUS
     Dosage: 1700 MILLIGRAM,1700 MG DAILY,(INTERVAL :1 DAYS)
     Route: 064
     Dates: start: 20160930, end: 20170224
  8. PROPRANOLOL [Suspect]
     Active Substance: PROPRANOLOL HYDROCHLORIDE
     Indication: HYPERTENSION
     Dosage: 80 MILLIGRAM,80 MG,(INTERVAL :1 DAYS)
     Route: 064
     Dates: start: 20170516
  9. INSULIN LISPRO [Suspect]
     Active Substance: INSULIN LISPRO
     Indication: TYPE 2 DIABETES MELLITUS
     Dosage: 21 MICROGRAM/SQ. METER,21 UG/M2, QD
     Route: 064
     Dates: start: 20170224
  10. NICARDIPINE [Suspect]
     Active Substance: NICARDIPINE
     Indication: HYPERTENSION
     Dosage: 50 MILLIGRAM,50MG FORM LP X2/DAY,(INTERVAL :12 HOURS)
     Route: 064
     Dates: start: 20170405, end: 20170914
  11. METHYLDOPA. [Suspect]
     Active Substance: METHYLDOPA
     Indication: HYPERTENSION
     Dosage: 1500 MILLIGRAM,1500 MG, QD,(INTERVAL :1 DAYS)
     Route: 064
     Dates: start: 20170720
  12. METFORMIN [Suspect]
     Active Substance: METFORMIN HYDROCHLORIDE
     Indication: TYPE 2 DIABETES MELLITUS
     Dosage: 1700 MILLIGRAM,1700 MG DAILY,(INTERVAL :1 DAYS)
     Route: 064
     Dates: start: 20170804
  13. GLICLAZIDE [Suspect]
     Active Substance: GLICLAZIDE
     Indication: TYPE 2 DIABETES MELLITUS
     Dosage: 120 MILLIGRAM,120 MG, QD,(INTERVAL :1 DAYS)
     Route: 064
     Dates: start: 20160930, end: 20170224
  14. AMOXICILLIN. [Suspect]
     Active Substance: AMOXICILLIN
     Indication: PRODUCT USED FOR UNKNOWN INDICATION
     Dosage: 3 GRAM,(INTERVAL :1 DAYS)
     Route: 064
     Dates: start: 20170804, end: 20170811
  15. NICOPATCH [Suspect]
     Active Substance: NICOTINE
     Indication: EX-TOBACCO USER
     Dosage: 7 MILLIGRAM,7 MG, QD,(INTERVAL :1 DAYS)
     Route: 064
     Dates: start: 20170224, end: 20170516
  16. INSULIN LISPRO [Suspect]
     Active Substance: INSULIN LISPRO
     Indication: TYPE 2 DIABETES MELLITUS
     Dosage: 7 MICROGRAM/SQ. METER,21 UG/M2, QD,(INTERVAL :1 DAYS)
     Route: 064
     Dates: start: 20170224
  17. INSULIN [Suspect]
     Active Substance: INSULIN NOS
     Indication: PRODUCT USED FOR UNKNOWN INDICATION
     Dosage: UNK UNK, UNK ()
     Route: 064
  18. INSULIN [Suspect]
     Active Substance: INSULIN NOS
     Indication: PRODUCT USED FOR UNKNOWN INDICATION
     Dosage: UNK UNK, UNK ()
     Route: 064
  19. DIFFU K [Suspect]
     Active Substance: POTASSIUM CHLORIDE
     Indication: HYPOKALAEMIA
     Dosage: 3600 MILLIGRAM,3600 MG, QD? 1200 MG, QD (2 TO 3 TIMES PER DAY),(INTERVAL :1 DAYS)
     Route: 064
     Dates: start: 20170804
  20. FUROSEMIDE. [Suspect]
     Active Substance: FUROSEMIDE
     Indication: HYPERTENSION
     Dosage: 40 MILLIGRAM,40 MG, UNK (SCORED TABLET)
     Route: 064
     Dates: start: 20170516
  21. AMOXICILLIN. [Suspect]
     Active Substance: AMOXICILLIN
     Indication: PRODUCT USED FOR UNKNOWN INDICATION
     Dosage: 1 MILLIGRAM,1 MG, QD,(INTERVAL :1 DAYS)
     Route: 065
     Dates: start: 201708, end: 20170811
  22. LARGACTIL [Suspect]
     Active Substance: CHLORPROMAZINE
     Indication: BIPOLAR I DISORDER
     Dosage: .5 DOSAGE FORM,25 MG,(INTERVAL :1 DAYS)
     Route: 064
     Dates: start: 20170720
  23. AMITRIPTYLINE [Suspect]
     Active Substance: AMITRIPTYLINE
     Indication: DIABETIC NEUROPATHY
     Dosage: 2 DOSAGE FORM,(INTERVAL :1 DAYS)
     Route: 064
     Dates: start: 20160930, end: 20170914
  24. PROPRANOLOL [Suspect]
     Active Substance: PROPRANOLOL HYDROCHLORIDE
     Indication: HYPERTENSION
     Dosage: 80 MILLIGRAM,80 MG,(INTERVAL :1 DAYS)
     Route: 064
     Dates: start: 20170516
  25. FOLIC ACID. [Suspect]
     Active Substance: FOLIC ACID
     Indication: NORMOCHROMIC NORMOCYTIC ANAEMIA
     Dosage: 5 MILLIGRAM,5 MG,(INTERVAL :1 DAYS)
     Route: 064
     Dates: start: 20170313
  26. TARDYFERON [Suspect]
     Active Substance: FERROUS SULFATE
     Indication: NORMOCHROMIC NORMOCYTIC ANAEMIA
     Dosage: 1 DOSAGE FORM,1 DF, QD,(INTERVAL :1 DAYS)
     Route: 064
     Dates: start: 20170313
  27. FUROSEMIDE. [Suspect]
     Active Substance: FUROSEMIDE
     Indication: HYPERTENSION
     Dosage: 40 MILLIGRAM,40 MG, UNK (SCORED TABLET)
     Route: 064
     Dates: start: 20170516
  28. FUROSEMIDE. [Suspect]
     Active Substance: FUROSEMIDE
     Indication: HYPERTENSION
     Dosage: 40 MILLIGRAM,40 MG, UNK (SCORED TABLET)
     Route: 064
     Dates: start: 201705
  29. GABAPENTINE [Suspect]
     Active Substance: GABAPENTIN
     Indication: DIABETIC NEUROPATHY
     Dosage: 800 MILLIGRAM,800 MG, QD,(INTERVAL :1 DAYS)
     Route: 064
     Dates: start: 20160930
  30. TRAMADOL. [Suspect]
     Active Substance: TRAMADOL
     Indication: DIABETIC NEUROPATHY
     Dosage: 50 MILLIGRAM,50 MG, QD,(INTERVAL :1 DAYS)
     Route: 064
     Dates: start: 20160930, end: 20170306
  31. LOXEN (NICARDIPINE HYDROCHLORIDE) [Suspect]
     Active Substance: NICARDIPINE HYDROCHLORIDE
     Indication: HYPERTENSION
     Dosage: UNK, UNK ()
     Route: 064
     Dates: start: 20170313, end: 20170405
  32. LARGACTIL [Suspect]
     Active Substance: CHLORPROMAZINE
     Indication: BIPOLAR I DISORDER
     Dosage: 25 MILLIGRAM,25 MG,(INTERVAL :1 DAYS)
     Route: 064
     Dates: start: 20170720
  33. LABETALOL [Suspect]
     Active Substance: LABETALOL\LABETALOL HYDROCHLORIDE
     Indication: HYPERTENSION
     Dosage: 80 MILLIGRAM,80 MG, QD,(INTERVAL :1 DAYS)
     Route: 064
     Dates: start: 20170516
  34. FORLAX [Suspect]
     Active Substance: POLYETHYLENE GLYCOL 4000
     Indication: CONSTIPATION
     Dosage: 1 DOSAGE FORM,1 DF, QD,(INTERVAL :1 DAYS)
     Route: 064
     Dates: start: 20160930, end: 20170405
  35. FERROUS SULFATE. [Suspect]
     Active Substance: FERROUS SULFATE
     Indication: NORMOCHROMIC NORMOCYTIC ANAEMIA
     Dosage: 1 DOSAGE FORM,(INTERVAL :1 DAYS)
     Route: 064
     Dates: start: 20170313, end: 20170914
  36. ARIPIPRAZOLE. [Suspect]
     Active Substance: ARIPIPRAZOLE
     Indication: BIPOLAR I DISORDER
     Dosage: 10 MILLIGRAM,(INTERVAL :1 DAYS)
     Route: 064
     Dates: start: 20160930, end: 20170224
  37. FOLINIC ACID [Suspect]
     Active Substance: LEUCOVORIN
     Indication: PRODUCT USED FOR UNKNOWN INDICATION
     Dosage: 5 MILLIGRAM,5 MG, QD,(INTERVAL :1 DAYS)
     Route: 064
     Dates: start: 20170224, end: 20170313
  38. FOLIC ACID. [Suspect]
     Active Substance: FOLIC ACID
     Indication: NORMOCHROMIC NORMOCYTIC ANAEMIA
     Dosage: 5 MILLIGRAM,5 MG, QD,(INTERVAL :1 DAYS)
     Route: 064
     Dates: start: 20170224, end: 20170313
  39. HUMALOG [Suspect]
     Active Substance: INSULIN LISPRO
     Indication: TYPE 2 DIABETES MELLITUS
     Dosage: 7 MICROGRAM/SQ. METER,7 UG/M2, QD,(INTERVAL :1 DAYS)
     Route: 064
     Dates: start: 20170224
  40. LAROXYL [Suspect]
     Active Substance: AMITRIPTYLINE HYDROCHLORIDE
     Indication: DIABETIC NEUROPATHY
     Dosage: 2 DOSAGE FORM,2 DF, QD,(INTERVAL :1 DAYS)
     Route: 064
     Dates: start: 20160930
  41. LEVEMIR [Suspect]
     Active Substance: INSULIN DETEMIR
     Indication: TYPE 2 DIABETES MELLITUS
     Dosage: 10 INTERNATIONAL UNIT,10 IU, QD,(INTERVAL :1 DAYS)
     Route: 064
     Dates: start: 20160930, end: 20170224
  42. METFORMIN [Suspect]
     Active Substance: METFORMIN HYDROCHLORIDE
     Indication: TYPE 2 DIABETES MELLITUS
     Dosage: 850 MILLIGRAM,850 MG DAILY,(INTERVAL :1 DAYS)
     Route: 064
     Dates: start: 20160930, end: 20170224
  43. NICARDIPINE [Suspect]
     Active Substance: NICARDIPINE
     Indication: HYPERTENSION
     Dosage: 50 MILLIGRAM,50MG FORM LP X2/DAY,(INTERVAL :12 HOURS)
     Route: 064
     Dates: start: 20170313
  44. LANTUS [Suspect]
     Active Substance: INSULIN GLARGINE
     Indication: TYPE 2 DIABETES MELLITUS
     Dosage: 20 INTERNATIONAL UNIT,20 IU, QD,(INTERVAL :1 DAYS)
     Route: 064
     Dates: start: 20170224

REACTIONS (5)
  - Neutropenia [Not Recovered/Not Resolved]
  - Foetal exposure during pregnancy [Unknown]
  - Premature baby [Not Recovered/Not Resolved]
  - Low birth weight baby [Unknown]
  - Foetal disorder [Unknown]

NARRATIVE: CASE EVENT DATE: 20170914
